FAERS Safety Report 5202904-9 (Version None)
Quarter: 2006Q4

REPORT INFORMATION
  Report Type: 
  Country: None (occurrence: None)
  Receive Date: 20061016
  Receipt Date: 20060405
  Transmission Date: 20070319
  Serious: Yes (Other)
  Sender: FDA-Public Use
  Company Number: 2006031827

PATIENT
  Age: 41 Year
  Sex: Female

DRUGS (2)
  1. NEURONTIN [Suspect]
     Indication: TRIGEMINAL NEURALGIA
     Dosage: 600 MG (300 MG, 2 IN 1 D)
     Dates: start: 20030801, end: 20041001
  2. PAXIL [Suspect]
     Indication: PANIC DISORDER
     Dosage: 12.5 MG (12.5 MG, 1 IN 1 D)
     Dates: start: 20030901

REACTIONS (4)
  - ANXIETY [None]
  - DEPRESSED MOOD [None]
  - PANIC ATTACK [None]
  - SUICIDAL IDEATION [None]
